FAERS Safety Report 8034294-0 (Version None)
Quarter: 2012Q1

REPORT INFORMATION
  Report Type: 
  Country: None (occurrence: None)
  Receive Date: 20120110
  Receipt Date: 20120105
  Transmission Date: 20120608
  Serious: Yes (Hospitalization)
  Sender: FDA-Public Use
  Company Number: PHEH2012US000518

PATIENT
  Sex: Female

DRUGS (13)
  1. BACLOFEN [Concomitant]
     Dosage: 30 MG, QD
  2. SENNA [Concomitant]
     Dosage: 2 DF, BID
  3. ALUMINIUM HYDROXIDE W/ MAGNESIUM HYDROXIDE [Concomitant]
     Dosage: UNK UKN, UNK
  4. REMERON [Concomitant]
     Dosage: 15 MG, QD
  5. OXYCODONE HCL [Concomitant]
     Dosage: 5 MG, Q3H
  6. KLONOPIN [Concomitant]
     Dosage: 0.15 MG, PRN
  7. LORAZEPAM [Concomitant]
     Dosage: 0.5 MG, PRN
  8. ACETAMINOPHEN [Concomitant]
     Dosage: 650 MG, Q4H
  9. GILENYA [Suspect]
     Dosage: 0.5 MG, QD
     Route: 048
     Dates: start: 20110701
  10. GILENYA [Suspect]
     Dosage: 0.5 MG, QD
     Route: 048
  11. VITAMIN D [Concomitant]
     Dosage: 800 U, QD
  12. MIRALAX [Concomitant]
     Dosage: 17 G, QD
  13. SIMETHICONE [Concomitant]
     Dosage: 30 ML, Q6H

REACTIONS (2)
  - DYSPNOEA [None]
  - SUICIDE ATTEMPT [None]
